FAERS Safety Report 6486622-5 (Version None)
Quarter: 2009Q4

REPORT INFORMATION
  Report Type: 
  Country: None (occurrence: None)
  Receive Date: 20091209
  Receipt Date: 20091209
  Transmission Date: 20100525
  Serious: Yes (Hospitalization)
  Sender: FDA-Public Use
  Company Number: None

PATIENT
  Sex: Male
  Weight: 63 kg

DRUGS (2)
  1. CARIMUNE NF [Suspect]
     Indication: GUILLAIN-BARRE SYNDROME
     Dosage: 30 GRAMS DAILY IV DRIP 2 DOSES
     Route: 041
     Dates: start: 20090825, end: 20090826
  2. CARIMUNE NF [Suspect]

REACTIONS (10)
  - DIALYSIS [None]
  - GUILLAIN-BARRE SYNDROME [None]
  - HERPES VIRUS INFECTION [None]
  - HYPOAESTHESIA [None]
  - LEUKOCYTOSIS [None]
  - MUSCULAR WEAKNESS [None]
  - NEURITIS [None]
  - PLASMAPHERESIS [None]
  - POLYNEUROPATHY [None]
  - RENAL FAILURE ACUTE [None]
